FAERS Safety Report 9664423 (Version 2)
Quarter: 2013Q4

REPORT INFORMATION
  Report Type: Spontaneous
  Country: US (occurrence: US)
  Receive Date: 20131101
  Receipt Date: 20131104
  Transmission Date: 20140711
  Serious: No
  Sender: FDA-Public Use
  Company Number: US-009507513-1310USA012747

PATIENT
  Age: 78 Year
  Sex: Female
  Weight: 56.69 kg

DRUGS (3)
  1. OXYTROL FOR WOMEN [Suspect]
     Indication: HYPERTONIC BLADDER
     Dosage: 1 DF, UNKNOWN
     Route: 062
     Dates: start: 20130913, end: 20130929
  2. TRAMADOL HYDROCHLORIDE [Concomitant]
     Indication: KNEE ARTHROPLASTY
     Dosage: UNK, UNKNOWN
  3. MELOXICAM [Concomitant]
     Indication: SHOULDER ARTHROPLASTY
     Dosage: UNK, UNKNOWN

REACTIONS (2)
  - Application site erythema [Recovered/Resolved]
  - Application site pain [Recovered/Resolved]
